FAERS Safety Report 20711814 (Version 1)
Quarter: 2022Q2

REPORT INFORMATION
  Report Type: Spontaneous
  Country: US (occurrence: US)
  Receive Date: 20220414
  Receipt Date: 20220414
  Transmission Date: 20220721
  Serious: No
  Sender: FDA-Public Use
  Company Number: US-PFIZER INC-202101181559

PATIENT
  Age: 48 Year
  Sex: Female

DRUGS (4)
  1. XELJANZ XR [Suspect]
     Active Substance: TOFACITINIB CITRATE
     Indication: Rheumatoid arthritis
     Dosage: 11 MG, DAILY
     Route: 048
     Dates: start: 20210412
  2. SYNTHROID [Concomitant]
     Active Substance: LEVOTHYROXINE SODIUM
     Dosage: 100 UG
  3. MELOXICAM [Concomitant]
     Active Substance: MELOXICAM
     Dosage: 15 MG
  4. BUPRENORPHINE HYDROCHLORIDE [Concomitant]
     Active Substance: BUPRENORPHINE HYDROCHLORIDE
     Dosage: 8 MG

REACTIONS (1)
  - Blood cholesterol increased [Unknown]

NARRATIVE: CASE EVENT DATE: 20210101
